FAERS Safety Report 6443947-7 (Version None)
Quarter: 2009Q4

REPORT INFORMATION
  Report Type: 
  Country: None (occurrence: None)
  Receive Date: 20091117
  Receipt Date: 20091111
  Transmission Date: 20100525
  Serious: Yes (Hospitalization)
  Sender: FDA-Public Use
  Company Number: US-GILEAD-2009-0025416

PATIENT
  Sex: Female

DRUGS (17)
  1. LETAIRIS [Suspect]
     Indication: PULMONARY ARTERIAL HYPERTENSION
     Route: 048
     Dates: start: 20090916, end: 20091013
  2. NITROGLYCERIN [Concomitant]
  3. AMIODARONE HCL [Concomitant]
  4. TORSEMIDE [Concomitant]
  5. POTASSIUM CHLORIDE [Concomitant]
  6. OMEPRAZOLE [Concomitant]
  7. CYMBALTA [Concomitant]
  8. ALBUTEROL [Concomitant]
  9. IPRATROPIUM [Concomitant]
  10. SPIRIVA [Concomitant]
  11. ADVAIR DISKUS 100/50 [Concomitant]
  12. KLONOPIN [Concomitant]
  13. SONATA [Concomitant]
  14. PLAVIX [Concomitant]
  15. CRESTOR [Concomitant]
  16. HUMALOG [Concomitant]
  17. LANTUS [Concomitant]

REACTIONS (2)
  - DYSPNOEA [None]
  - NON-CARDIAC CHEST PAIN [None]
